FAERS Safety Report 16493343 (Version 1)
Quarter: 2019Q2

REPORT INFORMATION
  Report Type: Other
  Country: DE (occurrence: DE)
  Receive Date: 20190628
  Receipt Date: 20190628
  Transmission Date: 20190711
  Serious: Yes (Other)
  Sender: FDA-Public Use
  Company Number: DE-LUPIN PHARMACEUTICALS INC.-2019-03879

PATIENT
  Age: 28 Year
  Sex: Female
  Weight: 61 kg

DRUGS (1)
  1. PAROXETINE HYDROCHLORIDE. [Suspect]
     Active Substance: PAROXETINE HYDROCHLORIDE
     Indication: SOCIAL ANXIETY DISORDER
     Dosage: 20 MILLIGRAM, 1 TABLET IN THE MORNING
     Route: 048
     Dates: start: 20130501, end: 20140501

REACTIONS (8)
  - Nightmare [Recovered/Resolved]
  - Sleep disorder [Recovered/Resolved]
  - Initial insomnia [Recovered/Resolved]
  - Anorgasmia [Recovered/Resolved]
  - Exposure during pregnancy [Unknown]
  - Dry mouth [Recovered/Resolved]
  - Apathy [Recovered/Resolved]
  - Somnolence [Recovered/Resolved]
